FAERS Safety Report 15351860 (Version 1)
Quarter: 2018Q4

REPORT INFORMATION
  Report Type: Spontaneous
  Country: FR (occurrence: FR)
  Receive Date: 20180905
  Receipt Date: 20180905
  Transmission Date: 20190204
  Serious: Yes (Other)
  Sender: FDA-Public Use
  Company Number: FR-PFIZER INC-2018357082

PATIENT
  Age: 70 Year
  Sex: Male

DRUGS (2)
  1. TRIATEC (RAMIPRIL) [Suspect]
     Active Substance: RAMIPRIL
     Dosage: 1 DF, DAILY (QD)
     Route: 065
  2. INIPOMP [Concomitant]
     Active Substance: PANTOPRAZOLE SODIUM
     Dosage: UNK

REACTIONS (4)
  - Muscle disorder [Not Recovered/Not Resolved]
  - Libido decreased [Not Recovered/Not Resolved]
  - Neuromyopathy [Not Recovered/Not Resolved]
  - Paraesthesia [Not Recovered/Not Resolved]
